FAERS Safety Report 10413124 (Version 5)
Quarter: 2014Q4

REPORT INFORMATION
  Report Type: Spontaneous
  Country: JP (occurrence: JP)
  Receive Date: 20140827
  Receipt Date: 20141014
  Transmission Date: 20150528
  Serious: Yes (Death, Other)
  Sender: FDA-Public Use
  Company Number: JP-BRISTOL-MYERS SQUIBB COMPANY-21335419

PATIENT
  Age: 68 Year
  Sex: Female
  Weight: 49.4 kg

DRUGS (12)
  1. INSULIN [Concomitant]
     Active Substance: INSULIN NOS
  2. PLAVIX [Suspect]
     Active Substance: CLOPIDOGREL BISULFATE
     Indication: PERCUTANEOUS CORONARY INTERVENTION
     Dosage: 75 MG/DAY-29JUL14
     Route: 048
     Dates: start: 20140728
  3. HUMULIN R [Concomitant]
     Active Substance: INSULIN HUMAN
     Indication: HYPERGLYCAEMIA
  4. PLETAL [Concomitant]
     Active Substance: CILOSTAZOL
     Indication: CEREBRAL INFARCTION
  5. EPADEL [Concomitant]
     Active Substance: ICOSAPENT
  6. MYSLEE [Concomitant]
     Active Substance: ZOLPIDEM TARTRATE
  7. APIDRA [Concomitant]
     Active Substance: INSULIN GLULISINE
     Indication: HYPERGLYCAEMIA
  8. ELIQUIS [Suspect]
     Active Substance: APIXABAN
     Indication: CEREBROVASCULAR ACCIDENT PROPHYLAXIS
     Dosage: ONG
     Route: 048
     Dates: start: 20140813
  9. ARTIST [Concomitant]
     Active Substance: CARVEDILOL
  10. BAYASPIRIN [Concomitant]
     Active Substance: ASPIRIN
     Indication: TRANSIENT ISCHAEMIC ATTACK
  11. LANTUS [Concomitant]
     Active Substance: INSULIN GLARGINE
     Indication: HYPERGLYCAEMIA
  12. ATELEC [Concomitant]
     Active Substance: CILNIDIPINE

REACTIONS (3)
  - Iliac artery rupture [Fatal]
  - Retroperitoneal haemorrhage [Fatal]
  - Activated partial thromboplastin time prolonged [Fatal]

NARRATIVE: CASE EVENT DATE: 20140820
